FAERS Safety Report 21946162 (Version 1)
Quarter: 2023Q1

REPORT INFORMATION
  Report Type: Spontaneous
  Country: US (occurrence: US)
  Receive Date: 20230202
  Receipt Date: 20230202
  Transmission Date: 20230417
  Serious: No
  Sender: FDA-Public Use
  Company Number: US-ADVANZ PHARMA-202208005043

PATIENT

DRUGS (3)
  1. DONNATAL [Suspect]
     Active Substance: ATROPINE SULFATE\HYOSCYAMINE SULFATE\PHENOBARBITAL\SCOPOLAMINE HYDROBROMIDE
     Indication: Abdominal pain
     Dosage: BEEN TAKING FOR 42 YEARS (EXPIRED DONNATAL TABLET ADMINISTERED)
  2. DONNATAL [Suspect]
     Active Substance: ATROPINE SULFATE\HYOSCYAMINE SULFATE\PHENOBARBITAL\SCOPOLAMINE HYDROBROMIDE
     Dosage: 1 DOSAGE FORM, PRN,1 TABLET (NUMBER OF UNITS INVOLVED-10 TABLETS)
     Route: 048
  3. DONNATAL [Suspect]
     Active Substance: ATROPINE SULFATE\HYOSCYAMINE SULFATE\PHENOBARBITAL\SCOPOLAMINE HYDROBROMIDE
     Dosage: 1 DOSAGE FORM, PRN (TOOK ANOTHER DONNATAL TABLET)
     Route: 048

REACTIONS (2)
  - Drug ineffective [Unknown]
  - Expired product administered [Unknown]
